FAERS Safety Report 5103926-9 (Version None)
Quarter: 2006Q3

REPORT INFORMATION
  Report Type: 
  Country: None (occurrence: None)
  Receive Date: 20060908
  Receipt Date: 20060907
  Transmission Date: 20061208
  Serious: Yes (Death, Hospitalization)
  Sender: FDA-Public Use
  Company Number: 224984

PATIENT
  Age: 56 Year
  Sex: Male

DRUGS (6)
  1. AVASTIN [Suspect]
     Indication: PANCREATIC CARCINOMA
     Dosage: 5 MG/KG
     Dates: start: 20060410, end: 20060419
  2. ALDACTONE [Concomitant]
  3. LASIX [Concomitant]
  4. OCTREOTIDE ACETATE [Concomitant]
  5. LACTULOSE [Concomitant]
  6. SALT-POOR ALBUMIN (ALBUMIN HUMAN) [Concomitant]

REACTIONS (6)
  - ASPIRATION [None]
  - EPISTAXIS [None]
  - HEPATIC FAILURE [None]
  - MALNUTRITION [None]
  - PROCEDURAL COMPLICATION [None]
  - THERAPEUTIC EMBOLISATION [None]
